FAERS Safety Report 15009907 (Version 1)
Quarter: 2018Q2

REPORT INFORMATION
  Report Type: Spontaneous
  Country: US (occurrence: US)
  Receive Date: 20180521
  Receipt Date: 20180521
  Transmission Date: 20180711
  Serious: Yes (Hospitalization)
  Sender: FDA-Public Use
  Company Number: None

PATIENT
  Age: 65 Year
  Sex: Male

DRUGS (1)
  1. SIROLIMUS. [Suspect]
     Active Substance: SIROLIMUS
     Indication: IMMUNOSUPPRESSION
     Route: 048
     Dates: start: 20180113, end: 20180205

REACTIONS (7)
  - Haemoptysis [None]
  - Dyspnoea [None]
  - Malignant melanoma [None]
  - Pulmonary alveolar haemorrhage [None]
  - International normalised ratio increased [None]
  - Pneumonitis [None]
  - Cough [None]

NARRATIVE: CASE EVENT DATE: 20180205
